FAERS Safety Report 7948250-1 (Version None)
Quarter: 2011Q4

REPORT INFORMATION
  Report Type: 
  Country: None (occurrence: None)
  Receive Date: 20111125
  Receipt Date: 20111108
  Transmission Date: 20120403
  Serious: Yes (Other)
  Sender: FDA-Public Use
  Company Number: FK201102660

PATIENT
  Age: 33 Year
  Sex: Female

DRUGS (1)
  1. FLUOROURACIL [Suspect]
     Indication: HEPATIC NEOPLASM MALIGNANT

REACTIONS (3)
  - EJECTION FRACTION DECREASED [None]
  - ANGINA PECTORIS [None]
  - CARDIOTOXICITY [None]
